FAERS Safety Report 6137419-7 (Version None)
Quarter: 2009Q1

REPORT INFORMATION
  Report Type: 
  Country: None (occurrence: None)
  Receive Date: 20090326
  Receipt Date: 20090317
  Transmission Date: 20090719
  Serious: Yes (Hospitalization, Disabling)
  Sender: FDA-Public Use
  Company Number: 2009-00789

PATIENT
  Age: 45 Year
  Sex: Female
  Weight: 35.9 kg

DRUGS (16)
  1. VELCADE [Suspect]
     Indication: LYMPHOMA AIDS RELATED
     Dosage: 0.7 MG/M2
     Dates: start: 20090122, end: 20090129
  2. ETOPOSIDE [Suspect]
     Indication: LYMPHOMA AIDS RELATED
     Dosage: 100 MG/M2
  3. RITUXIMAB (RITUXIMAB) INJECTION, 375MG/M2 [Suspect]
     Indication: LYMPHOMA AIDS RELATED
     Dosage: 375 MG/M2
  4. IFOSFAMIDE [Suspect]
     Indication: LYMPHOMA AIDS RELATED
     Dosage: 5000 MG/M2
  5. MESNEX [Suspect]
     Indication: LYMPHOMA AIDS RELATED
     Dosage: 5000 MG/M2
  6. CARBOPLATIN [Suspect]
     Indication: LYMPHOMA AIDS RELATED
  7. DEXAMETHASONE [Suspect]
     Indication: LYMPHOMA AIDS RELATED
     Dosage: 20 MG/M2
  8. CLONAZEPAM [Concomitant]
  9. DIDANOSINE [Concomitant]
  10. ABACAVIR [Concomitant]
  11. ELAVIL [Concomitant]
  12. ATAZANAVIR SULFATE [Concomitant]
  13. MORPHINE [Concomitant]
  14. PROMETHAZINE [Concomitant]
  15. SENNA (SENNA) [Concomitant]
  16. PYRIDOXINE (PYRIDOXINE) [Concomitant]

REACTIONS (9)
  - ABDOMINAL PAIN [None]
  - HAEMOGLOBIN DECREASED [None]
  - HYPOKALAEMIA [None]
  - HYPOPHOSPHATAEMIA [None]
  - NEUTROPHIL COUNT DECREASED [None]
  - PLATELET COUNT DECREASED [None]
  - PLEURAL EFFUSION [None]
  - PLEURAL FIBROSIS [None]
  - WHITE BLOOD CELL COUNT DECREASED [None]
